FAERS Safety Report 6377688-1 (Version None)
Quarter: 2009Q3

REPORT INFORMATION
  Report Type: 
  Country: None (occurrence: None)
  Receive Date: 20090921
  Receipt Date: 20090909
  Transmission Date: 20100115
  Serious: Yes (Other)
  Sender: FDA-Public Use
  Company Number: 1000008923

PATIENT
  Age: 30 Year
  Sex: Female
  Weight: 54 kg

DRUGS (3)
  1. ESCITALOPRAM [Suspect]
     Dosage: 20 MG (20 MG, 1 IN 1 D)
  2. CLONAZEPAM [Concomitant]
  3. VENTOLIN [Concomitant]

REACTIONS (6)
  - ASTHMA [None]
  - FALL [None]
  - HYPERSENSITIVITY [None]
  - RASH PRURITIC [None]
  - TREMOR [None]
  - VISION BLURRED [None]
